FAERS Safety Report 4580275-9 (Version None)
Quarter: 2005Q1

REPORT INFORMATION
  Report Type: 
  Country: None (occurrence: None)
  Receive Date: 20050214
  Receipt Date: 20050111
  Transmission Date: 20050727
  Serious: Yes (Hospitalization)
  Sender: FDA-Public Use
  Company Number: DE-GLAXOSMITHKLINE-D0045603A

PATIENT
  Age: 55 Year
  Sex: Female
  Weight: 90 kg

DRUGS (5)
  1. LAMICTAL [Suspect]
     Indication: BIPOLAR DISORDER
     Dosage: 100MG PER DAY
     Route: 048
     Dates: start: 20041216, end: 20050108
  2. CIPRALEX [Concomitant]
     Indication: DEPRESSION
     Dosage: 20MG PER DAY
     Route: 048
     Dates: start: 20041207
  3. QUILONUM RETARD [Concomitant]
     Indication: BIPOLAR DISORDER
     Dosage: 1TAB TWICE PER DAY
     Route: 048
     Dates: end: 20050111
  4. REMERGIL [Concomitant]
     Indication: DEPRESSION
     Dosage: 30MG PER DAY
     Route: 048
     Dates: start: 20041124
  5. ZYPREXA [Concomitant]
     Indication: DEPRESSION
     Dosage: 10MG PER DAY
     Dates: start: 20041026

REACTIONS (2)
  - DERMATITIS ALLERGIC [None]
  - TOXIC EPIDERMAL NECROLYSIS [None]
